FAERS Safety Report 16920579 (Version 1)
Quarter: 2019Q4

REPORT INFORMATION
  Report Type: Spontaneous
  Country: US (occurrence: US)
  Receive Date: 20191015
  Receipt Date: 20191015
  Transmission Date: 20200122
  Serious: No
  Sender: FDA-Public Use
  Company Number: US-C B FLEET CO INC-201809-US-002289

PATIENT
  Sex: Female

DRUGS (1)
  1. MONISTAT 1 COMBINATION PACK [Suspect]
     Active Substance: MICONAZOLE NITRATE
     Indication: PRODUCT USED FOR UNKNOWN INDICATION
     Dosage: DOSAGE UNKNOWN
     Route: 067
     Dates: start: 20180924, end: 20180924

REACTIONS (6)
  - Vulvovaginal pain [Unknown]
  - Wound [Unknown]
  - Hypersensitivity [Unknown]
  - Vaginal laceration [Unknown]
  - Vulvovaginal pruritus [Unknown]
  - Vulvovaginal swelling [Unknown]

NARRATIVE: CASE EVENT DATE: 20180925
